FAERS Safety Report 25760428 (Version 1)
Quarter: 2025Q3

REPORT INFORMATION
  Report Type: Spontaneous
  Country: PK (occurrence: PK)
  Receive Date: 20250904
  Receipt Date: 20250904
  Transmission Date: 20251021
  Serious: Yes (Other)
  Sender: JOHNSON AND JOHNSON
  Company Number: PK-JNJFOC-20250902714

PATIENT
  Age: 31 Year
  Sex: Female
  Weight: 28.9 kg

DRUGS (4)
  1. BEDAQUILINE [Suspect]
     Active Substance: BEDAQUILINE
     Indication: Tuberculosis
     Route: 048
     Dates: start: 20250423
  2. LINEZOLID [Suspect]
     Active Substance: LINEZOLID
     Indication: Tuberculosis
     Route: 048
     Dates: start: 20250423, end: 20250811
  3. MOXIFLOXACIN [Suspect]
     Active Substance: MOXIFLOXACIN
     Indication: Tuberculosis
     Route: 048
     Dates: start: 20250423
  4. PRETOMANID [Suspect]
     Active Substance: PRETOMANID
     Indication: Tuberculosis
     Route: 048
     Dates: start: 20250423

REACTIONS (1)
  - Neuropathy peripheral [Unknown]

NARRATIVE: CASE EVENT DATE: 20250811
